FAERS Safety Report 12711780 (Version 1)
Quarter: 2016Q3

REPORT INFORMATION
  Report Type: Spontaneous
  Country: US (occurrence: US)
  Receive Date: 20160902
  Receipt Date: 20160902
  Transmission Date: 20161109
  Serious: No
  Sender: FDA-Public Use
  Company Number: US-009507513-1609USA000702

PATIENT

DRUGS (1)
  1. MOMETASONE FUROATE. [Suspect]
     Active Substance: MOMETASONE FUROATE
     Dosage: UNK
     Dates: end: 20160814

REACTIONS (2)
  - Hypogeusia [Not Recovered/Not Resolved]
  - Dysgeusia [Not Recovered/Not Resolved]
